FAERS Safety Report 15941737 (Version 1)
Quarter: 2019Q1

REPORT INFORMATION
  Report Type: Spontaneous
  Country: US (occurrence: US)
  Receive Date: 20190210
  Receipt Date: 20190210
  Transmission Date: 20190417
  Serious: No
  Sender: FDA-Public Use
  Company Number: None

PATIENT
  Age: 52 Year
  Sex: Female
  Weight: 64.8 kg

DRUGS (2)
  1. LOSARTAN /HCTZ TAB 100-12.5 MFG: TORRENT PHARMA BATCH: BEF8D055 [Suspect]
     Active Substance: HYDROCHLOROTHIAZIDE\LOSARTAN
     Indication: HYPERTENSION
     Dosage: ?          QUANTITY:1 TABLET(S);?
     Route: 048
     Dates: start: 20190127, end: 20190209
  2. WOMAN^S MULTIVITAMIN ONE A DAY BRAND [Concomitant]

REACTIONS (9)
  - Nausea [None]
  - Feeling abnormal [None]
  - Carcinogenicity [None]
  - Recalled product [None]
  - Product substitution issue [None]
  - Product contamination chemical [None]
  - Fear [None]
  - Palpitations [None]
  - Product complaint [None]

NARRATIVE: CASE EVENT DATE: 20190203
